FAERS Safety Report 10610020 (Version 2)
Quarter: 2014Q4

REPORT INFORMATION
  Report Type: Spontaneous
  Country: MY (occurrence: MY)
  Receive Date: 20141126
  Receipt Date: 20141217
  Transmission Date: 20150529
  Serious: Yes (Hospitalization)
  Sender: FDA-Public Use
  Company Number: MY-JNJFOC-20141111329

PATIENT
  Age: 42 Year
  Weight: 82 kg

DRUGS (5)
  1. METHOTREXATE [Concomitant]
     Active Substance: METHOTREXATE
     Indication: ARTHRITIS ENTEROPATHIC
     Route: 065
     Dates: start: 20110224, end: 20141031
  2. PROPRANOLOL [Concomitant]
     Active Substance: PROPRANOLOL\PROPRANOLOL HYDROCHLORIDE
     Indication: MIGRAINE PROPHYLAXIS
     Route: 065
     Dates: start: 20121101
  3. FOLIC ACID. [Concomitant]
     Active Substance: FOLIC ACID
     Indication: PROPHYLAXIS
     Route: 065
     Dates: start: 20110224, end: 20111031
  4. INFLIXIMAB [Suspect]
     Active Substance: INFLIXIMAB
     Indication: COLITIS ULCERATIVE
     Dosage: APPROXIMATE NUMBER OF INFUSIONS PATIENT RECEIVED: 5
     Route: 042
     Dates: start: 20140625, end: 20141017
  5. SULPHASALAZINE [Concomitant]
     Active Substance: SULFASALAZINE
     Indication: ARTHRITIS ENTEROPATHIC
     Route: 065
     Dates: start: 20060913

REACTIONS (1)
  - Tuberculous pleurisy [Recovering/Resolving]

NARRATIVE: CASE EVENT DATE: 20141025
